FAERS Safety Report 12479243 (Version 2)
Quarter: 2016Q2

REPORT INFORMATION
  Report Type: Report from Study
  Country: JP (occurrence: JP)
  Receive Date: 20160620
  Receipt Date: 20160623
  Transmission Date: 20160815
  Serious: Yes (Other)
  Sender: FDA-Public Use
  Company Number: JP-ACCORD-041552

PATIENT
  Age: 74 Year
  Sex: Male

DRUGS (3)
  1. CARBOPLATIN. [Concomitant]
     Active Substance: CARBOPLATIN
     Indication: LUNG ADENOCARCINOMA
     Dosage: WEEKLY, 6 COURSES, 70 MG/WEEK,4 TIMES.?ALSO RECEIVED 200 MG/M2, 21 DAILY, (AUC)6, 94.9 MG/WEEK
  2. PACLITAXEL/PACLITAXEL LIPOSOME [Suspect]
     Active Substance: PACLITAXEL
     Indication: LUNG ADENOCARCINOMA
     Dosage: WEEKLY, 6 COURSES, 70 MG/WEEK,4 TIMES.?ALSO RECEIVED 200 MG/M2, 21 DAILY, (AUC)6, 94.9 MG/WEEK
  3. CLOPIDOGREL [Interacting]
     Active Substance: CLOPIDOGREL BISULFATE
     Indication: MYOCARDIAL INFARCTION
     Dosage: 75 MG/DAY

REACTIONS (3)
  - Leukopenia [Unknown]
  - Febrile neutropenia [Unknown]
  - Drug interaction [Unknown]
